FAERS Safety Report 5946036-0 (Version None)
Quarter: 2008Q4

REPORT INFORMATION
  Report Type: 
  Country: None (occurrence: None)
  Receive Date: 20081106
  Receipt Date: 20081106
  Transmission Date: 20090506
  Serious: Yes (Disabling)
  Sender: FDA-Public Use
  Company Number: None

PATIENT
  Age: 55 Year
  Sex: Female
  Weight: 67.1324 kg

DRUGS (3)
  1. LYRICA [Suspect]
     Indication: HEADACHE
     Dosage: 1 CAPS BID BID PO, 5-7 DAYS
     Route: 048
     Dates: start: 20080530, end: 20080606
  2. LYRICA [Suspect]
     Indication: MUSCULOSKELETAL PAIN
     Dosage: 1 CAPS BID BID PO, 5-7 DAYS
     Route: 048
     Dates: start: 20080530, end: 20080606
  3. LYRICA [Suspect]
     Indication: NECK PAIN
     Dosage: 1 CAPS BID BID PO, 5-7 DAYS
     Route: 048
     Dates: start: 20080530, end: 20080606

REACTIONS (9)
  - BLOOD CREATINE PHOSPHOKINASE INCREASED [None]
  - CANDIDIASIS [None]
  - CONTUSION [None]
  - DRY MOUTH [None]
  - INFLUENZA LIKE ILLNESS [None]
  - JOINT SWELLING [None]
  - MUSCULAR WEAKNESS [None]
  - OEDEMA PERIPHERAL [None]
  - SWELLING FACE [None]
